FAERS Safety Report 9196404 (Version 3)
Quarter: 2013Q3

REPORT INFORMATION
  Report Type: Spontaneous
  Country: US (occurrence: US)
  Receive Date: 20130328
  Receipt Date: 20130712
  Transmission Date: 20140515
  Serious: No
  Sender: FDA-Public Use
  Company Number: US-PFIZER INC-2013095344

PATIENT
  Age: 49 Year
  Sex: Female

DRUGS (5)
  1. RAPAMUNE [Suspect]
     Indication: LYMPHANGIOLEIOMYOMATOSIS
     Dosage: UNK
     Route: 048
  2. RAPAMYCIN [Suspect]
     Indication: LYMPHANGIOLEIOMYOMATOSIS
     Dosage: 1MG OR 0.5G, DAILY
     Route: 048
     Dates: start: 201206, end: 201302
  3. VITAMIN D [Concomitant]
     Dosage: UNK
  4. ASMANEX [Concomitant]
     Dosage: UNK
  5. ALBUTEROL [Concomitant]
     Dosage: UNK

REACTIONS (9)
  - Alopecia [Recovered/Resolved]
  - Throat tightness [Unknown]
  - Abdominal rigidity [Unknown]
  - Dyspnoea [Unknown]
  - Chest pain [Recovered/Resolved]
  - Abdominal distension [Recovered/Resolved]
  - Lymphadenopathy [Recovered/Resolved]
  - Off label use [Unknown]
  - Drug ineffective [Unknown]
